FAERS Safety Report 12126782 (Version 1)
Quarter: 2016Q1

REPORT INFORMATION
  Report Type: Spontaneous
  Country: SE (occurrence: US)
  Receive Date: 20160229
  Receipt Date: 20160229
  Transmission Date: 20160526
  Serious: Yes (Life-Threatening, Hospitalization)
  Sender: FDA-Public Use
  Company Number: SE-CIPLA LTD.-2016SE01494

PATIENT

DRUGS (3)
  1. OLANZAPINE. [Suspect]
     Active Substance: OLANZAPINE
     Dosage: 15 MG, PER DAY
     Route: 065
  2. OLANZAPINE. [Suspect]
     Active Substance: OLANZAPINE
     Dosage: 17.5 MG, PER DAY
     Route: 065
  3. TOPIRAMATE. [Suspect]
     Active Substance: TOPIRAMATE
     Dosage: 200 MG, BID
     Route: 065

REACTIONS (14)
  - Inappropriate affect [Unknown]
  - Unresponsive to stimuli [Unknown]
  - Mania [Unknown]
  - Insomnia [Unknown]
  - Tachyphrenia [Unknown]
  - Blood creatine phosphokinase increased [Unknown]
  - Hyperthermia [Recovered/Resolved]
  - Sinus tachycardia [Unknown]
  - Atelectasis [Unknown]
  - Rhabdomyolysis [Unknown]
  - Pressure of speech [Unknown]
  - Echolalia [Unknown]
  - Clang associations [Unknown]
  - Tearfulness [Unknown]
